FAERS Safety Report 22960375 (Version 3)
Quarter: 2023Q4

REPORT INFORMATION
  Report Type: Report from Study
  Country: US (occurrence: US)
  Receive Date: 20230920
  Receipt Date: 20231213
  Transmission Date: 20240110
  Serious: Yes (Hospitalization)
  Sender: FDA-Public Use
  Company Number: US-REATA PHARMACEUTICALS INC.-2023USRTAOMA000092

PATIENT

DRUGS (1)
  1. SKYCLARYS [Suspect]
     Active Substance: OMAVELOXOLONE
     Indication: Friedreich^s ataxia
     Dosage: 150 MILLIGRAM, QD
     Route: 048
     Dates: start: 20230704

REACTIONS (11)
  - Arthralgia [Unknown]
  - Viral infection [Unknown]
  - Bowel movement irregularity [Unknown]
  - Pruritus [Unknown]
  - Chills [Unknown]
  - Cough [Unknown]
  - Limb discomfort [Unknown]
  - Blood pressure increased [Unknown]
  - Influenza like illness [Unknown]
  - Blood cholesterol increased [Unknown]
  - Product dose omission issue [Unknown]

NARRATIVE: CASE EVENT DATE: 20230101
